FAERS Safety Report 8854186 (Version 1)
Quarter: 2012Q4

REPORT INFORMATION
  Report Type: Spontaneous
  Country: US (occurrence: None)
  Receive Date: 20121019
  Receipt Date: 20121019
  Transmission Date: 20130627
  Serious: Yes (Death)
  Sender: FDA-Public Use
  Company Number: None

PATIENT
  Age: 66 Year
  Sex: Female
  Weight: 79.38 kg

DRUGS (1)
  1. ORENCIA [Suspect]
     Indication: RHEUMATOID ARTHRITIS
     Dosage: 750mg iv every 4 wks
     Route: 042
     Dates: start: 20110726, end: 20120727

REACTIONS (6)
  - Asthenia [None]
  - Acute respiratory failure [None]
  - Sepsis [None]
  - Pneumonia [None]
  - Cardiac failure congestive [None]
  - Urinary tract infection [None]
